FAERS Safety Report 5190306-3 (Version None)
Quarter: 2006Q4

REPORT INFORMATION
  Report Type: 
  Country: None (occurrence: None)
  Receive Date: 20061222
  Receipt Date: 20061218
  Transmission Date: 20070319
  Serious: Yes (Hospitalization)
  Sender: FDA-Public Use
  Company Number: 2006UW28131

PATIENT
  Sex: Female

DRUGS (1)
  1. CRESTOR [Suspect]
     Route: 048
     Dates: start: 20050101

REACTIONS (13)
  - ASTHENIA [None]
  - BLEPHAROSPASM [None]
  - BLOOD PRESSURE INCREASED [None]
  - DYSPNOEA [None]
  - HEPATIC ENZYME INCREASED [None]
  - MUSCLE SPASMS [None]
  - MUSCULAR WEAKNESS [None]
  - PYREXIA [None]
  - SEPSIS [None]
  - SYNCOPE [None]
  - TREMOR [None]
  - URINARY TRACT INFECTION [None]
  - VOMITING [None]
